FAERS Safety Report 5475827-8 (Version None)
Quarter: 2007Q4

REPORT INFORMATION
  Report Type: 
  Country: None (occurrence: None)
  Receive Date: 20071003
  Receipt Date: 20070927
  Transmission Date: 20080405
  Serious: Yes (Hospitalization)
  Sender: FDA-Public Use
  Company Number: B0488034A

PATIENT
  Age: 51 Year
  Sex: Female
  Weight: 63 kg

DRUGS (1)
  1. VALTREX [Suspect]
     Indication: HERPES ZOSTER
     Route: 048
     Dates: start: 20070914, end: 20070918

REACTIONS (3)
  - DEHYDRATION [None]
  - NAUSEA [None]
  - VOMITING [None]
